FAERS Safety Report 10273068 (Version 1)
Quarter: 2014Q2

REPORT INFORMATION
  Report Type: Spontaneous
  Country: CN (occurrence: None)
  Receive Date: 20140630
  Receipt Date: 20140630
  Transmission Date: 20141212
  Serious: Yes (Other)
  Sender: FDA-Public Use
  Company Number: SYM-2014-22418

PATIENT
  Age: 22 Year
  Sex: Male

DRUGS (1)
  1. IMIQUIMOD [Suspect]
     Indication: ANOGENITAL WARTS
     Route: 061

REACTIONS (5)
  - Vitiligo [None]
  - Erythema [None]
  - Oedema [None]
  - Inflammation [None]
  - Refusal of treatment by patient [None]
